FAERS Safety Report 5855031-1 (Version None)
Quarter: 2008Q3

REPORT INFORMATION
  Report Type: 
  Country: None (occurrence: None)
  Receive Date: 20080822
  Receipt Date: 20080523
  Transmission Date: 20090109
  Serious: No
  Sender: FDA-Public Use
  Company Number: US-ABBOTT-08P-163-0455704-00

PATIENT
  Sex: Female
  Weight: 52.664 kg

DRUGS (4)
  1. SYNTHROID [Suspect]
     Indication: THYROID THERAPY
     Dates: start: 20080423, end: 20080429
  2. SYNTHROID [Suspect]
     Dates: start: 20080430, end: 20080506
  3. SYNTHROID [Suspect]
     Dates: start: 20080507, end: 20080527
  4. SYNTHROID [Suspect]
     Dates: start: 20080528

REACTIONS (3)
  - BLOOD PRESSURE DECREASED [None]
  - BLOOD THYROID STIMULATING HORMONE DECREASED [None]
  - PYREXIA [None]
